FAERS Safety Report 6178680-2 (Version None)
Quarter: 2009Q2

REPORT INFORMATION
  Report Type: 
  Country: None (occurrence: None)
  Receive Date: 20090430
  Receipt Date: 20090422
  Transmission Date: 20091009
  Serious: Yes (Other)
  Sender: FDA-Public Use
  Company Number: SPV1-2009-00783

PATIENT
  Age: 44 Year
  Sex: Female
  Weight: 54.4 kg

DRUGS (7)
  1. VYVANSE [Suspect]
     Indication: DISTURBANCE IN ATTENTION
     Dosage: 20 MG, 1X/DAY:QD, ORAL
     Route: 048
     Dates: start: 20090301, end: 20090401
  2. PROZAC [Suspect]
     Indication: ANXIETY
     Dosage: 20 MG, 1X/DAY:QD, ORAL
     Route: 048
     Dates: start: 19980101
  3. PROZAC [Suspect]
     Indication: DEPRESSION
     Dosage: 20 MG, 1X/DAY:QD, ORAL
     Route: 048
     Dates: start: 19980101
  4. KLONOPIN [Concomitant]
  5. ATIVAN [Concomitant]
  6. SEROQUEL [Concomitant]
  7. SKELXIN (PRIDINOL MESILATE) [Concomitant]

REACTIONS (5)
  - AFFECT LABILITY [None]
  - DEPRESSION [None]
  - IRRITABILITY [None]
  - MANIA [None]
  - SUICIDAL IDEATION [None]
